FAERS Safety Report 22956854 (Version 2)
Quarter: 2023Q4

REPORT INFORMATION
  Report Type: Spontaneous
  Country: JP (occurrence: JP)
  Receive Date: 20230919
  Receipt Date: 20231206
  Transmission Date: 20240110
  Serious: Yes (Death, Hospitalization, Other)
  Sender: FDA-Public Use
  Company Number: JP-ASTELLAS-2023JP001866

PATIENT
  Age: 40 Year
  Sex: Female
  Weight: 42.9 kg

DRUGS (16)
  1. PADCEV [Suspect]
     Active Substance: ENFORTUMAB VEDOTIN-EJFV
     Indication: Metastatic carcinoma of the bladder
     Dosage: 1.25 MG/KG, ONCE WEEKLY, ADMINISTERED FOR THREE WEEKS AND ONE WEEK REST
     Route: 041
     Dates: start: 20230201, end: 20230315
  2. PADCEV [Suspect]
     Active Substance: ENFORTUMAB VEDOTIN-EJFV
     Dosage: 1.00 MG/KG, ONCE WEEKLY, ADMINISTERED FOR THREE WEEKS AND ONE WEEK REST
     Route: 041
     Dates: start: 20230502, end: 20230627
  3. KEYTRUDA [Suspect]
     Active Substance: PEMBROLIZUMAB
     Indication: Metastatic carcinoma of the bladder
     Dosage: 200 MG, UNKNOWN FREQ., 4 TIMES
     Route: 042
     Dates: start: 20221013, end: 20221223
  4. DEXAMETHASONE [Concomitant]
     Active Substance: DEXAMETHASONE
     Indication: Stomatitis
     Dosage: UNK UNK, UNKNOWN FREQ.
     Route: 065
  5. DEXAMETHASONE [Concomitant]
     Active Substance: DEXAMETHASONE
     Indication: Angular cheilitis
  6. ARTANE [Concomitant]
     Active Substance: TRIHEXYPHENIDYL HYDROCHLORIDE
     Indication: Schizophrenia
     Route: 048
     Dates: end: 202307
  7. CARBAMAZEPINE [Concomitant]
     Active Substance: CARBAMAZEPINE
     Indication: Schizophrenia
     Route: 048
     Dates: end: 202307
  8. BROMAZEPAM [Concomitant]
     Active Substance: BROMAZEPAM
     Indication: Schizophrenia
     Route: 048
     Dates: end: 202307
  9. ETHYL LOFLAZEPATE [Concomitant]
     Active Substance: ETHYL LOFLAZEPATE
     Indication: Schizophrenia
     Route: 048
     Dates: end: 202307
  10. BROTIZOLAM [Concomitant]
     Active Substance: BROTIZOLAM
     Indication: Schizophrenia
     Dosage: 0.25 MG, ONCE DAILY
     Route: 048
     Dates: end: 202307
  11. CHLORPROMAZINE [Concomitant]
     Active Substance: CHLORPROMAZINE
     Indication: Schizophrenia
     Route: 048
     Dates: end: 202307
  12. ABILIFY [Concomitant]
     Active Substance: ARIPIPRAZOLE
     Indication: Schizophrenia
     Route: 048
     Dates: end: 202307
  13. OLANZAPINE [Concomitant]
     Active Substance: OLANZAPINE
     Indication: Schizophrenia
     Route: 048
     Dates: start: 20230201, end: 202307
  14. LEVOTHYROXINE [Concomitant]
     Active Substance: LEVOTHYROXINE
     Indication: Hypothyroidism
     Route: 048
     Dates: start: 20230207, end: 202307
  15. XYLOCAINE [Concomitant]
     Active Substance: LIDOCAINE HYDROCHLORIDE
     Indication: Stomatitis
     Dosage: UNK UNK, UNKNOWN FREQ.
     Route: 050
  16. XYLOCAINE [Concomitant]
     Active Substance: LIDOCAINE HYDROCHLORIDE
     Indication: Angular cheilitis

REACTIONS (5)
  - Metastatic carcinoma of the bladder [Fatal]
  - Stomatitis [Recovering/Resolving]
  - Angular cheilitis [Recovering/Resolving]
  - Pruritus [Recovered/Resolved]
  - Weight decreased [Unknown]

NARRATIVE: CASE EVENT DATE: 20230201
